FAERS Safety Report 4711398-9 (Version None)
Quarter: 2005Q3

REPORT INFORMATION
  Report Type: 
  Country: None (occurrence: None)
  Receive Date: 20050708
  Receipt Date: 20050627
  Transmission Date: 20060218
  Serious: Yes (Death, Hospitalization, Other)
  Sender: FDA-Public Use
  Company Number: 2005093807

PATIENT
  Sex: Female

DRUGS (1)
  1. BEXTRA [Suspect]
     Indication: SYSTEMIC LUPUS ERYTHEMATOSUS
     Dosage: (1 IN 1 D)
     Dates: end: 20050101

REACTIONS (9)
  - ADVERSE EVENT [None]
  - CARDIAC DISORDER [None]
  - CEREBROVASCULAR ACCIDENT [None]
  - CONVULSION [None]
  - INTRACARDIAC THROMBUS [None]
  - LARYNGEAL DISORDER [None]
  - LIVER FUNCTION TEST ABNORMAL [None]
  - MASS [None]
  - THROMBOSIS [None]
